FAERS Safety Report 5958820-8 (Version None)
Quarter: 2008Q4

REPORT INFORMATION
  Report Type: 
  Country: None (occurrence: None)
  Receive Date: 20081119
  Receipt Date: 20081117
  Transmission Date: 20090506
  Serious: Yes (Hospitalization)
  Sender: FDA-Public Use
  Company Number: US-ABBOTT-08P-163-0486043-00

PATIENT
  Sex: Female
  Weight: 90.8 kg

DRUGS (7)
  1. HUMIRA [Suspect]
     Indication: RHEUMATOID ARTHRITIS
     Route: 050
     Dates: start: 20080201
  2. ROSUVASTATIN [Suspect]
     Indication: BLOOD CHOLESTEROL
  3. AMLODIPINE [Concomitant]
     Indication: HYPERTENSION
  4. AGGRONOX [Concomitant]
     Indication: TRANSIENT ISCHAEMIC ATTACK
     Dosage: 25MG/200MG BLOOD THINNER
  5. DIOVAN HCT [Concomitant]
     Indication: BLOOD PRESSURE
  6. AMLODIPINE MALEATE [Concomitant]
     Indication: BLOOD PRESSURE
  7. METHOTREXATE [Concomitant]
     Indication: RHEUMATOID ARTHRITIS
     Dates: start: 20080201

REACTIONS (10)
  - ARRHYTHMIA [None]
  - ARTHRALGIA [None]
  - CHEST DISCOMFORT [None]
  - MUSCLE SPASMS [None]
  - MUSCLE TIGHTNESS [None]
  - OSTEOPOROSIS [None]
  - PALPITATIONS [None]
  - TENSION HEADACHE [None]
  - TIBIA FRACTURE [None]
  - TRANSIENT ISCHAEMIC ATTACK [None]
